FAERS Safety Report 8525975-0 (Version None)
Quarter: 2012Q3

REPORT INFORMATION
  Report Type: 
  Country: None (occurrence: None)
  Receive Date: 20120720
  Receipt Date: 20120626
  Transmission Date: 20120928
  Serious: Yes (Other)
  Sender: FDA-Public Use
  Company Number: BR-ABBOTT-12P-020-0950455-00

PATIENT
  Sex: Female
  Weight: 70 kg

DRUGS (5)
  1. CYMBALTA [Concomitant]
     Indication: FIBROMYALGIA
     Route: 048
  2. ZETRON [Concomitant]
     Indication: ANTIDEPRESSANT THERAPY
     Route: 048
     Dates: start: 20120501
  3. MIRTAX [Concomitant]
     Indication: ANXIOLYTIC THERAPY
     Route: 048
  4. TIBOLONE [Concomitant]
     Indication: HORMONE THERAPY
     Route: 048
  5. HUMIRA [Suspect]
     Indication: ANKYLOSING SPONDYLITIS
     Route: 058
     Dates: start: 20110401, end: 20120201

REACTIONS (3)
  - THYROID CANCER [None]
  - ANKYLOSING SPONDYLITIS [None]
  - DRUG INEFFECTIVE [None]
